FAERS Safety Report 16030104 (Version 2)
Quarter: 2019Q1

REPORT INFORMATION
  Report Type: Spontaneous
  Country: ES (occurrence: ES)
  Receive Date: 20190304
  Receipt Date: 20190320
  Transmission Date: 20190418
  Serious: Yes (Other)
  Sender: FDA-Public Use
  Company Number: ES-BAYER-2019-043006

PATIENT
  Sex: Female

DRUGS (4)
  1. ESSURE [Suspect]
     Active Substance: DEVICE
     Dosage: UNK
     Dates: start: 20130403
  2. MIRENA [Suspect]
     Active Substance: LEVONORGESTREL
     Indication: MENORRHAGIA
     Dosage: 20 MCG/24HR, CONT
     Route: 015
     Dates: start: 201709, end: 201811
  3. MIRENA [Suspect]
     Active Substance: LEVONORGESTREL
  4. MIRENA [Suspect]
     Active Substance: LEVONORGESTREL
     Indication: ENDOMETRIOSIS

REACTIONS (11)
  - Abdominal pain [Unknown]
  - Endometriosis [Unknown]
  - Device expulsion [Unknown]
  - Genital haemorrhage [Unknown]
  - Abdominal distension [Unknown]
  - Pelvic pain [Unknown]
  - Uterine polyp [Unknown]
  - Fungal infection [Unknown]
  - Back pain [Unknown]
  - Uterine spasm [Unknown]
  - Abdominal pain [None]

NARRATIVE: CASE EVENT DATE: 201304
